FAERS Safety Report 10601558 (Version 1)
Quarter: 2014Q4

REPORT INFORMATION
  Report Type: Spontaneous
  Country: JP (occurrence: JP)
  Receive Date: 20141124
  Receipt Date: 20141124
  Transmission Date: 20150529
  Serious: Yes (Other)
  Sender: FDA-Public Use
  Company Number: JP-009507513-1411JPN009189

PATIENT
  Sex: Female
  Weight: 2.58 kg

DRUGS (1)
  1. ESLAX [Suspect]
     Active Substance: ROCURONIUM BROMIDE
     Dosage: 40 MG, QD
     Route: 064
     Dates: start: 20140303, end: 20140303

REACTIONS (2)
  - Neonatal asphyxia [Unknown]
  - Foetal exposure during pregnancy [Unknown]

NARRATIVE: CASE EVENT DATE: 20140904
